FAERS Safety Report 10981183 (Version 2)
Quarter: 2015Q2

REPORT INFORMATION
  Report Type: Spontaneous
  Country: US (occurrence: US)
  Receive Date: 20150402
  Receipt Date: 20150525
  Transmission Date: 20150821
  Serious: No
  Sender: FDA-Public Use
  Company Number: US-JNJFOC-20140717852

PATIENT
  Age: 81 Year
  Sex: Female
  Weight: 78.02 kg

DRUGS (3)
  1. IMODIUM MULTI-SYMPTOM RELIEF [Suspect]
     Active Substance: DIMETHICONE\LOPERAMIDE HYDROCHLORIDE
     Route: 048
  2. IMODIUM MULTI-SYMPTOM RELIEF [Suspect]
     Active Substance: DIMETHICONE\LOPERAMIDE HYDROCHLORIDE
     Indication: DIARRHOEA
     Route: 048
  3. HIGH BLOOD PRESSURE MEDICATION, NOS [Concomitant]
     Indication: HYPERTENSION
     Route: 065

REACTIONS (2)
  - Retching [Recovered/Resolved]
  - Product difficult to swallow [Recovered/Resolved]
